FAERS Safety Report 4630252-4 (Version None)
Quarter: 2005Q2

REPORT INFORMATION
  Report Type: 
  Country: None (occurrence: None)
  Receive Date: 20050405
  Receipt Date: 20050405
  Transmission Date: 20051028
  Serious: No
  Sender: FDA-Public Use
  Company Number: None

PATIENT
  Age: 76 Year
  Sex: Female

DRUGS (2)
  1. WARFARIN TBS 2; 2 MG [Suspect]
     Indication: DEEP VEIN THROMBOSIS
     Dosage: TAKE AS DIRECTED FOR DVT MANAGEMENT (4 MG ON 5 DAYS, 6 MG ON 2 DAYS)
     Dates: start: 20050117
  2. . [Concomitant]

REACTIONS (2)
  - DRUG LEVEL BELOW THERAPEUTIC [None]
  - PHARMACEUTICAL PRODUCT COMPLAINT [None]
